FAERS Safety Report 10867572 (Version 1)
Quarter: 2015Q1

REPORT INFORMATION
  Report Type: Spontaneous
  Country: FR (occurrence: FR)
  Receive Date: 20150225
  Receipt Date: 20150225
  Transmission Date: 20150721
  Serious: Yes (Hospitalization)
  Sender: FDA-Public Use
  Company Number: FR-JNJFOC-20150213654

PATIENT
  Age: 6 Year
  Sex: Male
  Weight: 21 kg

DRUGS (2)
  1. TRAMADOL HYDROCHLORIDE. [Suspect]
     Active Substance: TRAMADOL HYDROCHLORIDE
     Indication: PAIN
     Route: 048
  2. ANESTHETICS, GENERAL [Suspect]
     Active Substance: UNSPECIFIED INGREDIENT
     Indication: ADENOTONSILLECTOMY
     Route: 065

REACTIONS (6)
  - Coma [Recovered/Resolved]
  - Lethargy [Recovered/Resolved]
  - Oxygen saturation decreased [None]
  - Apnoea [None]
  - Miosis [None]
  - Respiratory depression [Recovered/Resolved]
